FAERS Safety Report 7852869-6 (Version None)
Quarter: 2011Q3

REPORT INFORMATION
  Report Type: 
  Country: None (occurrence: None)
  Receive Date: 20110914
  Receipt Date: 20100817
  Transmission Date: 20111222
  Serious: Yes (Hospitalization)
  Sender: FDA-Public Use
  Company Number: 1000015795

PATIENT
  Sex: Female

DRUGS (2)
  1. CELEXA [Suspect]
     Dosage: (20 MG),ORAL
     Route: 048
  2. XANAX [Suspect]
     Indication: ANXIETY

REACTIONS (2)
  - PALPITATIONS [None]
  - DRUG INEFFECTIVE [None]
